FAERS Safety Report 7489114-X (Version None)
Quarter: 2011Q2

REPORT INFORMATION
  Report Type: 
  Country: None (occurrence: None)
  Receive Date: 20110518
  Receipt Date: 20110510
  Transmission Date: 20111010
  Serious: Yes (Life-Threatening)
  Sender: FDA-Public Use
  Company Number: JP-CELGENEUS-087-21660-11051507

PATIENT
  Sex: Female
  Weight: 68 kg

DRUGS (5)
  1. LYRICA [Concomitant]
     Route: 065
     Dates: start: 20110120
  2. ABRAXANE [Suspect]
     Indication: BREAST CANCER METASTATIC
     Dosage: 450 MILLIGRAM
     Dates: start: 20110113, end: 20110113
  3. GOSHA-JINKI-GAN [Concomitant]
     Route: 065
     Dates: start: 20110120
  4. LOXONIN [Concomitant]
     Route: 065
     Dates: start: 20110120
  5. BOLTAREN [Concomitant]
     Route: 065
     Dates: start: 20110120

REACTIONS (2)
  - NEUTROPHIL COUNT DECREASED [None]
  - WHITE BLOOD CELL COUNT DECREASED [None]
